FAERS Safety Report 26160685 (Version 1)
Quarter: 2025Q4

REPORT INFORMATION
  Report Type: Report from Study
  Country: CA (occurrence: CA)
  Receive Date: 20251216
  Receipt Date: 20251216
  Transmission Date: 20260117
  Serious: Yes (Other)
  Sender: REGENERON
  Company Number: CA-BAYER-2025A163580

PATIENT
  Sex: Male

DRUGS (1)
  1. EYLEA [Suspect]
     Active Substance: AFLIBERCEPT
     Indication: Diabetic retinal oedema
     Dosage: 8 MG/0.07 ML, INTRAVITREAL, SOLUTION FOR INJECTION IN PRE-FILLED SYRINGE, 114.3 MG/ML
     Route: 031
     Dates: start: 20251209

REACTIONS (1)
  - Blindness transient [Recovered/Resolved]

NARRATIVE: CASE EVENT DATE: 20251209
